FAERS Safety Report 15893173 (Version 1)
Quarter: 2019Q1

REPORT INFORMATION
  Report Type: Spontaneous
  Country: PL (occurrence: PL)
  Receive Date: 20190130
  Receipt Date: 20190130
  Transmission Date: 20190417
  Serious: No
  Sender: FDA-Public Use
  Company Number: PL-IPSEN-CABO-18017312

PATIENT
  Age: 39 Year
  Sex: Male

DRUGS (2)
  1. CABOMETYX [Suspect]
     Active Substance: CABOZANTINIB S-MALATE
     Indication: METASTASES TO LUNG
     Dosage: 40 MG, UNK
     Dates: start: 20170814
  2. CABOMETYX [Suspect]
     Active Substance: CABOZANTINIB S-MALATE
     Indication: RENAL CELL CARCINOMA
     Dosage: 60 MG, QD
     Dates: start: 20170711, end: 201708

REACTIONS (7)
  - Blood pressure increased [Unknown]
  - Hypothyroidism [Unknown]
  - Alanine aminotransferase increased [Recovered/Resolved]
  - Skin disorder [Unknown]
  - Aspartate aminotransferase increased [Recovered/Resolved]
  - Skin maceration [Recovered/Resolved]
  - Proteinuria [Unknown]

NARRATIVE: CASE EVENT DATE: 2017
